FAERS Safety Report 4985883-9 (Version None)
Quarter: 2006Q2

REPORT INFORMATION
  Report Type: 
  Country: None (occurrence: None)
  Receive Date: 20060428
  Receipt Date: 20060418
  Transmission Date: 20061013
  Serious: Yes (Hospitalization)
  Sender: FDA-Public Use
  Company Number: US-GILEAD-2006-0009470

PATIENT
  Age: 53 Year
  Sex: Male
  Weight: 46.308 kg

DRUGS (14)
  1. BLINDED EMTRICITABINE/TENOFOVIR DF [Suspect]
     Indication: HIV INFECTION
     Route: 048
     Dates: start: 20060206
  2. BLINDED ABACAVIR/LAMIVUDINE [Suspect]
     Indication: HIV INFECTION
     Route: 048
     Dates: start: 20060206
  3. EFAVIRENZ [Concomitant]
     Indication: HIV INFECTION
     Route: 048
     Dates: start: 20060206
  4. BACTRIM DS [Concomitant]
     Indication: PROPHYLAXIS
     Dates: start: 20051201
  5. FLUCONAZOLE [Concomitant]
     Dates: start: 20051201
  6. KEPPRA [Concomitant]
     Indication: CONVULSION
     Dates: start: 20051201
  7. ATORVASTATIN CALCIUM [Concomitant]
     Indication: HYPERLIPIDAEMIA
     Dates: start: 20051201
  8. ASCORBIC ACID [Concomitant]
     Dates: start: 20051201
  9. ZINC [Concomitant]
     Dates: start: 20051201
  10. COREG [Concomitant]
     Dates: start: 20051201
  11. LISINOPRIL [Concomitant]
     Dates: start: 20051201
  12. BENADRYL [Concomitant]
     Dates: start: 20060208
  13. PREDNISOLONE [Concomitant]
     Indication: IMMUNE RECONSTITUTION SYNDROME
     Dates: start: 20060304
  14. ACYCLOVIR [Concomitant]
     Indication: HERPES VIRUS INFECTION

REACTIONS (5)
  - ANAEMIA [None]
  - CONFUSIONAL STATE [None]
  - DIARRHOEA [None]
  - DYSPNOEA [None]
  - PYREXIA [None]
